FAERS Safety Report 6750443-6 (Version None)
Quarter: 2010Q2

REPORT INFORMATION
  Report Type: 
  Country: None (occurrence: None)
  Receive Date: 20100527
  Receipt Date: 20100518
  Transmission Date: 20101027
  Serious: Yes (Hospitalization)
  Sender: FDA-Public Use
  Company Number: TPG2010A00343

PATIENT
  Age: 71 Year
  Sex: Female

DRUGS (8)
  1. ACTOPLUS MET [Suspect]
     Indication: TYPE 2 DIABETES MELLITUS
     Dosage: PER ORAL
     Route: 048
     Dates: start: 20091101, end: 20100406
  2. FALITHROM (PHENPROCOUMON) [Suspect]
     Dosage: PER ORAL
     Route: 048
     Dates: end: 20100406
  3. XIPAMIDE [Suspect]
     Indication: HYPERTENSION
     Dosage: 20 MG (20 MG, 1 IN 1 D) PER ORAL
     Route: 048
     Dates: start: 20090101
  4. TORSEMIDE [Suspect]
     Indication: HYPERTENSION
     Dosage: 10 MG (10 MG, 1 IN 1 D), PER ORAL
     Route: 048
     Dates: start: 20090101
  5. DIGITOXIN [Concomitant]
  6. CITALOPRAM HYDROBROMIDE [Concomitant]
  7. BI PRETERAX (INDAPAMIDE, PERINDOPRIL ERBUMINE) [Concomitant]
  8. METOPROLOL SUCCINATE [Concomitant]

REACTIONS (7)
  - DEHYDRATION [None]
  - DIALYSIS [None]
  - LACTIC ACIDOSIS [None]
  - OVERDOSE [None]
  - PROTHROMBIN TIME PROLONGED [None]
  - RENAL FAILURE ACUTE [None]
  - VOMITING [None]
